FAERS Safety Report 15016971 (Version 1)
Quarter: 2018Q2

REPORT INFORMATION
  Report Type: Spontaneous
  Country: US (occurrence: US)
  Receive Date: 20180615
  Receipt Date: 20180615
  Transmission Date: 20180711
  Serious: No
  Sender: FDA-Public Use
  Company Number: US-TAKEDA-2018MPI007509

PATIENT
  Sex: Female

DRUGS (22)
  1. OMEGA 3-6-9                        /01333901/ [Concomitant]
     Active Substance: OMEGA-3 FATTY ACIDS
  2. OMEPRAZOLE. [Concomitant]
     Active Substance: OMEPRAZOLE
  3. REVLIMID [Concomitant]
     Active Substance: LENALIDOMIDE
     Dosage: 15 MG, UNK
  4. PROCHLORPERAZINE                   /00013304/ [Concomitant]
  5. TRAMADOL HCL [Concomitant]
     Active Substance: TRAMADOL HYDROCHLORIDE
  6. NINLARO [Suspect]
     Active Substance: IXAZOMIB CITRATE
     Indication: PLASMA CELL MYELOMA
     Dosage: 2.3 MG, UNK
     Route: 048
  7. ASPIRIN                            /00002701/ [Concomitant]
     Active Substance: ASPIRIN
  8. GABAPENTIN. [Concomitant]
     Active Substance: GABAPENTIN
  9. VITAMIN D2 [Concomitant]
     Active Substance: ERGOCALCIFEROL
  10. LORATADINE. [Concomitant]
     Active Substance: LORATADINE
  11. ONDANSETRON HCL [Concomitant]
     Active Substance: ONDANSETRON HYDROCHLORIDE
  12. ROPINIROLE HCL [Concomitant]
     Active Substance: ROPINIROLE HYDROCHLORIDE
  13. VALACYCLOVIR HCL [Concomitant]
     Active Substance: VALACYCLOVIR HYDROCHLORIDE
  14. GLIMEPIRIDE. [Concomitant]
     Active Substance: GLIMEPIRIDE
  15. METFORMIN HCL [Concomitant]
     Active Substance: METFORMIN HYDROCHLORIDE
     Dosage: UNK
  16. SPIRONOLACTONE. [Concomitant]
     Active Substance: SPIRONOLACTONE
  17. DEXAMETHASONE. [Suspect]
     Active Substance: DEXAMETHASONE
     Indication: PRODUCT USED FOR UNKNOWN INDICATION
     Dosage: UNK
     Route: 065
  18. CYCLOBENZAPRINE HCL [Concomitant]
     Active Substance: CYCLOBENZAPRINE HYDROCHLORIDE
  19. FENOFIBRATE. [Concomitant]
     Active Substance: FENOFIBRATE
  20. AMLODIPINE BESYLATE. [Concomitant]
     Active Substance: AMLODIPINE BESYLATE
  21. DIPHENOXYLATE/ATROPINE [Concomitant]
     Active Substance: ATROPINE\DIPHENOXYLATE
  22. POTASSIUM CHLORIDE. [Concomitant]
     Active Substance: POTASSIUM CHLORIDE

REACTIONS (1)
  - Ear infection [Unknown]
